FAERS Safety Report 5317620-2 (Version None)
Quarter: 2007Q2

REPORT INFORMATION
  Report Type: 
  Country: None (occurrence: None)
  Receive Date: 20070507
  Receipt Date: 20070426
  Transmission Date: 20071010
  Serious: Yes (Other)
  Sender: FDA-Public Use
  Company Number: PHBS2007IE07290

PATIENT
  Age: 38 Year
  Sex: Female

DRUGS (1)
  1. EXJADE [Suspect]
     Dosage: 30 MG/KG/D
     Route: 048

REACTIONS (4)
  - DIZZINESS [None]
  - GAIT DISTURBANCE [None]
  - NERVOUS SYSTEM DISORDER [None]
  - TINNITUS [None]
